FAERS Safety Report 10167957 (Version 1)
Quarter: 2014Q2

REPORT INFORMATION
  Report Type: Spontaneous
  Country: US (occurrence: US)
  Receive Date: 20140512
  Receipt Date: 20140512
  Transmission Date: 20141212
  Serious: Yes (Life-Threatening, Hospitalization, Other)
  Sender: FDA-Public Use
  Company Number: US-VIIV HEALTHCARE LIMITED-A1072708A

PATIENT
  Sex: Male

DRUGS (11)
  1. EPZICOM [Suspect]
     Indication: HIV INFECTION
     Route: 065
     Dates: start: 2012, end: 20140418
  2. ATAZANAVIR [Suspect]
     Indication: HIV INFECTION
     Route: 065
     Dates: start: 2012, end: 20140418
  3. TRUVADA [Suspect]
     Indication: HIV INFECTION
     Route: 065
  4. RITONAVIR [Suspect]
     Indication: HIV INFECTION
     Route: 065
  5. CRESTOR [Concomitant]
  6. ZETIA [Concomitant]
  7. METOPROLOL [Concomitant]
     Dates: end: 20140402
  8. LISINOPRIL [Concomitant]
  9. ASA [Concomitant]
  10. PLAVIX [Concomitant]
  11. CARVEDILOL [Concomitant]
     Dates: start: 20140402

REACTIONS (8)
  - Myocardial infarction [Recovered/Resolved]
  - Coronary angioplasty [Recovered/Resolved]
  - Stent placement [Unknown]
  - Dyspnoea [Recovered/Resolved]
  - Chest pain [Recovered/Resolved]
  - Vomiting [Recovered/Resolved]
  - Drug intolerance [Not Recovered/Not Resolved]
  - Drug dose omission [Unknown]
